FAERS Safety Report 4502617-2 (Version None)
Quarter: 2004Q4

REPORT INFORMATION
  Report Type: 
  Country: None (occurrence: None)
  Receive Date: 20041110
  Receipt Date: 20041102
  Transmission Date: 20050328
  Serious: Yes (Hospitalization)
  Sender: FDA-Public Use
  Company Number: DEWYE165502NOV04

PATIENT
  Age: 44 Year
  Sex: Female

DRUGS (5)
  1. EFFEXOR XR [Suspect]
     Dosage: ORAL
     Route: 048
     Dates: start: 20041030, end: 20041030
  2. REMERGIL                   (MIRTAZAPINE) [Suspect]
     Dosage: ORAL
     Route: 048
     Dates: start: 20041030, end: 20041030
  3. SEROQUEL [Suspect]
     Dosage: ORAL
     Route: 048
     Dates: start: 20041030, end: 20041030
  4. UNSPECIFIED ANTIDEPRESSANT             (UNSPECIFIED ANTIDEPRESSANT) [Suspect]
     Dosage: ORAL
     Route: 048
     Dates: start: 20041030, end: 20041030
  5. UNSPECIFIED BENZODIAZEPINE              (UNSPECIFIED BENZODIAZEPINE) [Suspect]
     Dosage: ORAL
     Route: 048
     Dates: start: 20041030, end: 20041030

REACTIONS (3)
  - ASPIRATION [None]
  - INTENTIONAL OVERDOSE [None]
  - LOSS OF CONSCIOUSNESS [None]
